FAERS Safety Report 10645603 (Version 1)
Quarter: 2014Q4

REPORT INFORMATION
  Report Type: Spontaneous
  Country: US (occurrence: None)
  Receive Date: 20141210
  Receipt Date: 20141210
  Transmission Date: 20150529
  Serious: Yes (Life-Threatening, Other)
  Sender: FDA-Public Use
  Company Number: None

PATIENT
  Age: 61 Year
  Sex: Male
  Weight: 74.84 kg

DRUGS (5)
  1. DULOXETINE [Suspect]
     Active Substance: DULOXETINE
     Indication: SUICIDAL IDEATION
     Dosage: 2 PILLS ONCE DAILY TAKEN BY MOUTH
     Route: 048
     Dates: start: 20141020, end: 20141209
  2. DULOXETINE [Suspect]
     Active Substance: DULOXETINE
     Indication: ANXIETY
     Dosage: 2 PILLS ONCE DAILY TAKEN BY MOUTH
     Route: 048
     Dates: start: 20141020, end: 20141209
  3. DULOXETINE [Suspect]
     Active Substance: DULOXETINE
     Indication: PANIC ATTACK
     Dosage: 2 PILLS ONCE DAILY TAKEN BY MOUTH
     Route: 048
     Dates: start: 20141020, end: 20141209
  4. DULOXETINE [Suspect]
     Active Substance: DULOXETINE
     Indication: PHOBIA
     Dosage: 2 PILLS ONCE DAILY TAKEN BY MOUTH
     Route: 048
     Dates: start: 20141020, end: 20141209
  5. DULOXETINE [Suspect]
     Active Substance: DULOXETINE
     Indication: NEURALGIA
     Dosage: 2 PILLS ONCE DAILY TAKEN BY MOUTH
     Route: 048
     Dates: start: 20141020, end: 20141209

REACTIONS (8)
  - Panic attack [None]
  - Abdominal discomfort [None]
  - Pain [None]
  - Product substitution issue [None]
  - Anxiety [None]
  - Neuropathy peripheral [None]
  - Suicidal ideation [None]
  - Drug ineffective [None]
